FAERS Safety Report 4899576-X (Version None)
Quarter: 2006Q1

REPORT INFORMATION
  Report Type: 
  Country: None (occurrence: None)
  Receive Date: 20060130
  Receipt Date: 20060113
  Transmission Date: 20060701
  Serious: Yes (Other)
  Sender: FDA-Public Use
  Company Number: 2006-BP-00409RO

PATIENT
  Age: 79 Year
  Sex: Female

DRUGS (8)
  1. LITHIUM CARBONATE [Suspect]
     Indication: BIPOLAR DISORDER
     Dosage: 600 MG DIALY
  2. MIRTAZAPINE [Suspect]
     Indication: DEPRESSION
  3. VENLAFAXINE HCL [Suspect]
     Indication: DEPRESSION
  4. PAROXETINE HCL [Suspect]
     Indication: DEPRESSION
     Dosage: 40 MG DAILY, PO
     Route: 048
  5. TRAZODONE HCL [Suspect]
     Indication: DEPRESSION
     Dosage: 150 MG DAILY
  6. ENALAPRIL MALEATE [Concomitant]
  7. HYDROCHLOROTHIAZIDE [Concomitant]
  8. THIOPENTAL SODIUM [Concomitant]

REACTIONS (8)
  - ANXIETY [None]
  - APHASIA [None]
  - COGNITIVE DISORDER [None]
  - DISORIENTATION [None]
  - DRUG INEFFECTIVE [None]
  - DRUG LEVEL BELOW THERAPEUTIC [None]
  - ELECTROENCEPHALOGRAM ABNORMAL [None]
  - ESSENTIAL HYPERTENSION [None]
